FAERS Safety Report 10674255 (Version 1)
Quarter: 2014Q4

REPORT INFORMATION
  Report Type: Spontaneous
  Country: CH (occurrence: CH)
  Receive Date: 20141224
  Receipt Date: 20141224
  Transmission Date: 20150529
  Serious: Yes (Other)
  Sender: FDA-Public Use
  Company Number: CH-SA-2014SA174650

PATIENT
  Sex: Male

DRUGS (1)
  1. CLEXANE [Suspect]
     Active Substance: ENOXAPARIN SODIUM
     Route: 058
     Dates: start: 2014

REACTIONS (4)
  - Heart rate decreased [Unknown]
  - Malaise [Unknown]
  - Oedema peripheral [Unknown]
  - Restlessness [Unknown]

NARRATIVE: CASE EVENT DATE: 20141103
